FAERS Safety Report 4389167-1 (Version None)
Quarter: 2004Q2

REPORT INFORMATION
  Report Type: 
  Country: None (occurrence: None)
  Receive Date: 20040628
  Receipt Date: 20040616
  Transmission Date: 20050107
  Serious: Yes (Death)
  Sender: FDA-Public Use
  Company Number: 2004PK00820

PATIENT

DRUGS (1)
  1. NAROPIN [Suspect]
     Indication: ANAESTHESIA
     Dosage: 240 MG DAILY PNEU

REACTIONS (3)
  - ANAESTHETIC COMPLICATION [None]
  - CARDIAC ARREST [None]
  - MEDICATION ERROR [None]
